FAERS Safety Report 5068273-2 (Version None)
Quarter: 2006Q3

REPORT INFORMATION
  Report Type: 
  Country: None (occurrence: None)
  Receive Date: 20060802
  Receipt Date: 20050707
  Transmission Date: 20061208
  Serious: No
  Sender: FDA-Public Use
  Company Number: US-BRISTOL-MYERS SQUIBB COMPANY-13028626

PATIENT
  Age: 62 Year
  Sex: Female
  Weight: 105 kg

DRUGS (4)
  1. COUMADIN [Suspect]
     Indication: ATRIAL FIBRILLATION
     Dosage: THHE CONSUMER WAS TAKING WARFARIN SODIUM 5 MG FOR TWO DAYS AND 2.5 MG EVERY THIRD DAY.
     Dates: start: 20030301
  2. CARDIZEM [Concomitant]
  3. LIMBITROL DS [Concomitant]
  4. PRILOSEC [Concomitant]

REACTIONS (4)
  - ABDOMINAL DISTENSION [None]
  - INTERNATIONAL NORMALISED RATIO FLUCTUATION [None]
  - MALAISE [None]
  - PAIN [None]
